FAERS Safety Report 4425502-3 (Version None)
Quarter: 2004Q3

REPORT INFORMATION
  Report Type: 
  Country: None (occurrence: None)
  Receive Date: 20040719
  Receipt Date: 20030527
  Transmission Date: 20050211
  Serious: Yes (Hospitalization)
  Sender: FDA-Public Use
  Company Number: 173645

PATIENT
  Age: 59 Year
  Sex: Female
  Weight: 45.3597 kg

DRUGS (5)
  1. AVONEX [Suspect]
     Indication: MULTIPLE SCLEROSIS
     Dosage: 30 MCG QW IM
     Route: 030
     Dates: start: 19990101, end: 20030601
  2. FOSAMAX [Concomitant]
  3. IMITREX [Concomitant]
  4. OGEN [Concomitant]
  5. ZOLOFT [Concomitant]

REACTIONS (8)
  - ASTHENIA [None]
  - DEMENTIA ALZHEIMER'S TYPE [None]
  - DEPRESSION [None]
  - DYSPNOEA [None]
  - HYPERTENSION [None]
  - LYME DISEASE [None]
  - MYCOPLASMA INFECTION [None]
  - PSYCHOTIC DISORDER [None]
